FAERS Safety Report 6303356-8 (Version None)
Quarter: 2009Q3

REPORT INFORMATION
  Report Type: 
  Country: None (occurrence: None)
  Receive Date: 20090810
  Receipt Date: 20081202
  Transmission Date: 20100115
  Serious: No
  Sender: FDA-Public Use
  Company Number: US-TYCO HEALTHCARE/MALLINCKRODT-T200802073

PATIENT
  Age: 40 Year
  Sex: Male

DRUGS (5)
  1. PAMELOR [Suspect]
     Indication: DEPRESSION
     Dosage: 50 MG, QD
     Route: 048
     Dates: start: 20080929
  2. PAMELOR [Suspect]
     Dosage: 75 MG, QD
     Route: 048
  3. PAMELOR [Suspect]
     Dosage: 100 MG, QD
     Route: 048
  4. PAMELOR [Suspect]
     Dosage: 150 MG, QD (QHS)
     Route: 048
     Dates: start: 20081202
  5. ABILIFY [Concomitant]
     Indication: DEPRESSION
     Dosage: 2 MG, QD
     Route: 048
     Dates: start: 20081201

REACTIONS (8)
  - ANGER [None]
  - DEPRESSED MOOD [None]
  - DRUG INEFFECTIVE [None]
  - FATIGUE [None]
  - MUSCLE TIGHTNESS [None]
  - PAIN [None]
  - SOCIAL AVOIDANT BEHAVIOUR [None]
  - SUICIDAL IDEATION [None]
